FAERS Safety Report 17627637 (Version 4)
Quarter: 2025Q3

REPORT INFORMATION
  Report Type: Spontaneous
  Country: EU (occurrence: EU)
  Receive Date: 20200405
  Receipt Date: 20250807
  Transmission Date: 20251021
  Serious: Yes (Other)
  Sender: AUROBINDO
  Company Number: EU-002147023-PHHY2018PT166754

PATIENT
  Age: 26 Year
  Sex: Female

DRUGS (13)
  1. CALCITRIOL [Suspect]
     Active Substance: CALCITRIOL
     Indication: Chronic kidney disease-mineral and bone disorder
     Route: 065
  2. CINACALCET [Suspect]
     Active Substance: CINACALCET
     Indication: Chronic kidney disease-mineral and bone disorder
     Route: 065
  3. FOLIC ACID [Suspect]
     Active Substance: FOLIC ACID
     Indication: Chronic kidney disease-mineral and bone disorder
     Route: 065
  4. MYCOPHENOLATE MOFETIL [Suspect]
     Active Substance: MYCOPHENOLATE MOFETIL
     Indication: Chronic kidney disease-mineral and bone disorder
     Route: 065
  5. MYCOPHENOLATE MOFETIL [Suspect]
     Active Substance: MYCOPHENOLATE MOFETIL
     Indication: Systemic lupus erythematosus
  6. OMEPRAZOLE [Suspect]
     Active Substance: OMEPRAZOLE
     Indication: Chronic kidney disease-mineral and bone disorder
     Route: 065
  7. SIMVASTATIN [Suspect]
     Active Substance: SIMVASTATIN
     Indication: Chronic kidney disease-mineral and bone disorder
     Route: 065
  8. PREDNISOLONE [Suspect]
     Active Substance: PREDNISOLONE
     Indication: Chronic kidney disease-mineral and bone disorder
     Route: 065
  9. CHOLECALCIFEROL [Suspect]
     Active Substance: CHOLECALCIFEROL
     Indication: Chronic kidney disease-mineral and bone disorder
     Route: 065
  10. CALCIUM CARBONATE [Suspect]
     Active Substance: CALCIUM CARBONATE
     Indication: Chronic kidney disease-mineral and bone disorder
     Route: 065
  11. DARBEPOETIN ALFA [Suspect]
     Active Substance: DARBEPOETIN ALFA
     Indication: Chronic kidney disease-mineral and bone disorder
     Route: 016
  12. ENOXAPARIN SODIUM [Suspect]
     Active Substance: ENOXAPARIN SODIUM
     Indication: Chronic kidney disease-mineral and bone disorder
     Route: 065
  13. ICODEXTRIN [Suspect]
     Active Substance: ICODEXTRIN
     Indication: Product used for unknown indication
     Route: 065

REACTIONS (7)
  - Chronic kidney disease-mineral and bone disorder [Unknown]
  - Hyperparathyroidism [Unknown]
  - End stage renal disease [Unknown]
  - Treatment noncompliance [Unknown]
  - Product use in unapproved indication [Unknown]
  - Therapeutic response decreased [Unknown]
  - Off label use [Unknown]

NARRATIVE: CASE EVENT DATE: 20130101
